FAERS Safety Report 15121520 (Version 1)
Quarter: 2018Q3

REPORT INFORMATION
  Report Type: Spontaneous
  Country: US (occurrence: US)
  Receive Date: 20180709
  Receipt Date: 20180709
  Transmission Date: 20181010
  Serious: No
  Sender: FDA-Public Use
  Company Number: US-TAIHO ONCOLOGY INC-EU-2018-00920

PATIENT
  Sex: Female
  Weight: 67.19 kg

DRUGS (15)
  1. LONSURF [Suspect]
     Active Substance: TIPIRACIL HYDROCHLORIDE\TRIFLURIDINE
     Dosage: CURRENT CYCLE 7
     Route: 048
     Dates: start: 20180103, end: 20180625
  2. KETOROLAC [Concomitant]
     Active Substance: KETOROLAC\KETOROLAC TROMETHAMINE
     Dosage: NI
  3. OMEPRAZOLE. [Concomitant]
     Active Substance: OMEPRAZOLE
     Dosage: NI
  4. ZOFRAN [Concomitant]
     Active Substance: ONDANSETRON HYDROCHLORIDE
     Dosage: NI
  5. CLONAZEPAM. [Concomitant]
     Active Substance: CLONAZEPAM
     Dosage: NI
  6. BACTRIM DS [Concomitant]
     Active Substance: SULFAMETHOXAZOLE\TRIMETHOPRIM
     Dosage: NI
  7. TEMOVATE [Concomitant]
     Active Substance: CLOBETASOL PROPIONATE
     Dosage: NI
  8. LYRICA [Concomitant]
     Active Substance: PREGABALIN
     Dosage: NI
  9. DILAUDID [Concomitant]
     Active Substance: HYDROMORPHONE HYDROCHLORIDE
     Dosage: NI
  10. CLINDAMYCIN. [Concomitant]
     Active Substance: CLINDAMYCIN
     Dosage: NI
  11. LISINOPRIL. [Concomitant]
     Active Substance: LISINOPRIL
     Dosage: NI
  12. SERTRALINE [Concomitant]
     Active Substance: SERTRALINE HYDROCHLORIDE
     Dosage: NI
  13. LACTULOSE. [Concomitant]
     Active Substance: LACTULOSE
     Dosage: NI
  14. LASIX [Concomitant]
     Active Substance: FUROSEMIDE
     Dosage: NI
  15. REMERON [Concomitant]
     Active Substance: MIRTAZAPINE
     Dosage: NI

REACTIONS (1)
  - Disease progression [Unknown]
